FAERS Safety Report 12921009 (Version 2)
Quarter: 2019Q2

REPORT INFORMATION
  Report Type: Report from Study
  Country: CZ (occurrence: CZ)
  Receive Date: 20161107
  Receipt Date: 20190601
  Transmission Date: 20190711
  Serious: Yes (Hospitalization, Other)
  Sender: FDA-Public Use
  Company Number: CZ-UCBSA-2016041735

PATIENT
  Age: 62 Year
  Sex: Female

DRUGS (4)
  1. CERTOLIZUMAB PEGOL [Suspect]
     Active Substance: CERTOLIZUMAB PEGOL
     Indication: RHEUMATOID ARTHRITIS
     Dosage: UNK
     Dates: start: 20110922, end: 2016
  2. METHOTREXATE. [Concomitant]
     Active Substance: METHOTREXATE
     Indication: RHEUMATOID ARTHRITIS
     Dosage: UNK
  3. PREDNISONE. [Concomitant]
     Active Substance: PREDNISONE
     Indication: RHEUMATIC DISORDER
  4. CERTOLIZUMAB PEGOL [Suspect]
     Active Substance: CERTOLIZUMAB PEGOL
     Dosage: 200 MILLIGRAM, EV 2 WEEKS(QOW)
     Dates: start: 20170719, end: 20190514

REACTIONS (3)
  - Adenocarcinoma of colon [Recovering/Resolving]
  - Metastases to ovary [Not Recovered/Not Resolved]
  - Lung cancer metastatic [Not Recovered/Not Resolved]

NARRATIVE: CASE EVENT DATE: 20160914
